FAERS Safety Report 4811543-0 (Version None)
Quarter: 2005Q4

REPORT INFORMATION
  Report Type: 
  Country: None (occurrence: None)
  Receive Date: 20051025
  Receipt Date: 20051011
  Transmission Date: 20060501
  Serious: Yes (Hospitalization)
  Sender: FDA-Public Use
  Company Number: 2005-0008811

PATIENT
  Age: 67 Year
  Sex: Female

DRUGS (11)
  1. VIREAD [Suspect]
     Indication: HIV INFECTION
     Dosage: 300 MG, 1 IN 1 D, ORAL
     Route: 048
     Dates: start: 20040726
  2. PREDNISONE [Suspect]
     Indication: NEUROPATHY PERIPHERAL
     Dosage: 2.5 MG, 1 IN 1 D, ORAL; 5 MG, 1 IN 1 D, ORAL; 7.5 MG, 1 IN 1 D, ORAL
     Route: 048
     Dates: start: 20040726, end: 20040913
  3. PREDNISONE [Suspect]
     Indication: NEUROPATHY PERIPHERAL
     Dosage: 2.5 MG, 1 IN 1 D, ORAL; 5 MG, 1 IN 1 D, ORAL; 7.5 MG, 1 IN 1 D, ORAL
     Route: 048
     Dates: start: 20040914, end: 20040928
  4. PREDNISONE [Suspect]
     Indication: NEUROPATHY PERIPHERAL
     Dosage: 2.5 MG, 1 IN 1 D, ORAL; 5 MG, 1 IN 1 D, ORAL; 7.5 MG, 1 IN 1 D, ORAL
     Route: 048
     Dates: start: 20040929, end: 20041129
  5. PREDNISONE [Suspect]
     Indication: NEUROPATHY PERIPHERAL
     Dosage: 2.5 MG, 1 IN 1 D, ORAL; 5 MG, 1 IN 1 D, ORAL; 7.5 MG, 1 IN 1 D, ORAL
     Route: 048
     Dates: start: 20041130, end: 20041227
  6. EPIVIR [Concomitant]
  7. EFAVIRENZ [Concomitant]
  8. BACTRIM [Concomitant]
  9. ONEALFA (ALFACALCIDOL) [Concomitant]
  10. FAMOTIDINE [Concomitant]
  11. AMOBAN (ZOPICLONE) [Concomitant]

REACTIONS (1)
  - THORACIC VERTEBRAL FRACTURE [None]
